FAERS Safety Report 12215504 (Version 2)
Quarter: 2016Q3

REPORT INFORMATION
  Report Type: Spontaneous
  Country: JP (occurrence: JP)
  Receive Date: 20160328
  Receipt Date: 20160801
  Transmission Date: 20161109
  Serious: Yes (Death)
  Sender: FDA-Public Use
  Company Number: JP-TEVA-645570ISR

PATIENT
  Age: 83 Year
  Sex: Female
  Weight: 46 kg

DRUGS (10)
  1. OXYCODONE HYDROCHLORIDE HYDRATE [Concomitant]
     Active Substance: OXYCODONE HYDROCHLORIDE
     Indication: CANCER PAIN
     Dosage: 60 MILLIGRAM DAILY;
     Route: 048
     Dates: end: 20150820
  2. OXIFAST [Concomitant]
     Active Substance: OXYCODONE
     Indication: BREAKTHROUGH PAIN
     Route: 042
     Dates: start: 20150820
  3. E-FEN BUCCAL [Suspect]
     Active Substance: FENTANYL CITRATE
     Dosage: DAILY DOESE: 200-600 MICROGRAM
     Route: 002
     Dates: start: 20150815, end: 20150819
  4. AZUNOL [Concomitant]
     Active Substance: SODIUM GUALENATE
     Indication: METASTASES TO SKIN
     Route: 061
  5. ACTOSIN [Concomitant]
     Indication: DECUBITUS ULCER
     Dosage: 3 GRAM DAILY;
     Route: 061
  6. LANSOPRAZOLE OD [Concomitant]
     Active Substance: LANSOPRAZOLE
     Indication: PROPHYLAXIS
     Dosage: 15 MILLIGRAM DAILY;
     Route: 048
     Dates: end: 20150820
  7. OXIFAST [Concomitant]
     Active Substance: OXYCODONE
     Indication: CANCER PAIN
     Dosage: 36 MILLIGRAM DAILY;
     Route: 042
     Dates: start: 20150820
  8. E-FEN BUCCAL [Suspect]
     Active Substance: FENTANYL CITRATE
     Indication: BREAKTHROUGH PAIN
     Dosage: DAILY DOESE: 100-200 MICROGRAM
     Route: 002
     Dates: start: 20150813, end: 20150814
  9. CALONAL [Concomitant]
     Active Substance: ACETAMINOPHEN
     Indication: CANCER PAIN
     Dosage: 2400 MILLIGRAM DAILY;
     Route: 048
     Dates: end: 20150820
  10. MAGLAX [Concomitant]
     Active Substance: MAGNESIUM OXIDE
     Indication: CONSTIPATION PROPHYLAXIS
     Dosage: 990 MILLIGRAM DAILY;
     Route: 048
     Dates: start: 20150816, end: 20150820

REACTIONS (4)
  - Breast cancer [Fatal]
  - Somnolence [Not Recovered/Not Resolved]
  - Nausea [Recovering/Resolving]
  - Decreased appetite [Not Recovered/Not Resolved]

NARRATIVE: CASE EVENT DATE: 20150818
